FAERS Safety Report 9334888 (Version 3)
Quarter: 2013Q3

REPORT INFORMATION
  Report Type: Spontaneous
  Country: US (occurrence: US)
  Receive Date: 20130606
  Receipt Date: 20130710
  Transmission Date: 20140515
  Serious: Yes (Other)
  Sender: FDA-Public Use
  Company Number: PHEH2013US012025

PATIENT
  Sex: Female

DRUGS (6)
  1. EXFORGE [Suspect]
     Dosage: 1 DF (320 MG VALS / 10 MG AMLO), UNK
     Dates: start: 200811
  2. METFORMIN [Suspect]
     Dosage: UNK UKN, UNK
     Dates: start: 200811
  3. TRADJENTA [Concomitant]
     Dosage: 5 MG, UNK
  4. LOVASTATIN [Concomitant]
     Dosage: 20 MG, UNK
  5. BYSTOLIC [Concomitant]
     Dosage: 10 MG, UNK
  6. FUROSEMIDE [Concomitant]
     Dosage: 20 MG, UNK

REACTIONS (2)
  - Diabetes mellitus [Unknown]
  - Renal disorder [Unknown]
